FAERS Safety Report 4832558-2 (Version None)
Quarter: 2005Q4

REPORT INFORMATION
  Report Type: 
  Country: None (occurrence: None)
  Receive Date: 20051117
  Receipt Date: 20051104
  Transmission Date: 20060501
  Serious: Yes (Other)
  Sender: FDA-Public Use
  Company Number: 2005152884

PATIENT
  Sex: Female
  Weight: 80.7403 kg

DRUGS (1)
  1. DRAMAMINE (DIMENHYDRINATE) [Suspect]
     Indication: NAUSEA
     Dosage: ORAL
     Route: 048

REACTIONS (2)
  - ABORTION SPONTANEOUS [None]
  - DRUG EXPOSURE DURING PREGNANCY [None]
